FAERS Safety Report 11186090 (Version 4)
Quarter: 2017Q4

REPORT INFORMATION
  Report Type: Spontaneous
  Country: AT (occurrence: AT)
  Receive Date: 20150612
  Receipt Date: 20171222
  Transmission Date: 20180320
  Serious: Yes (Hospitalization, Other)
  Sender: FDA-Public Use
  Company Number: AT-ELI_LILLY_AND_COMPANY-AT201506001187

PATIENT
  Sex: Male
  Weight: 125 kg

DRUGS (23)
  1. RISPERDAL [Interacting]
     Active Substance: RISPERIDONE
     Dosage: 2 MG, UNKNOWN
     Route: 065
     Dates: start: 20141028, end: 20160204
  2. RIVOTRIL [Concomitant]
     Active Substance: CLONAZEPAM
     Indication: PRODUCT USED FOR UNKNOWN INDICATION
     Dosage: 0.5 MG, UNKNOWN
     Route: 065
     Dates: start: 20141015, end: 20150315
  3. LYRICA [Interacting]
     Active Substance: PREGABALIN
     Dosage: 300 MG, UNKNOWN
     Route: 048
     Dates: start: 20160209, end: 20160210
  4. CIPRALEX [Suspect]
     Active Substance: ESCITALOPRAM OXALATE
     Indication: PRODUCT USED FOR UNKNOWN INDICATION
     Dosage: 10 MG, UNKNOWN
     Route: 048
     Dates: start: 201401, end: 20141029
  5. TOPAMAX [Suspect]
     Active Substance: TOPIRAMATE
     Dosage: 50 MG, UNKNOWN
     Route: 048
     Dates: start: 20141107, end: 20150308
  6. WELLBUTRIN [Concomitant]
     Active Substance: BUPROPION HYDROCHLORIDE
     Indication: PRODUCT USED FOR UNKNOWN INDICATION
     Dosage: UNK, UNKNOWN
     Route: 065
     Dates: start: 20150311, end: 20150512
  7. RISPERDAL [Interacting]
     Active Substance: RISPERIDONE
     Indication: PRODUCT USED FOR UNKNOWN INDICATION
     Dosage: 0.5 MG, UNKNOWN
     Route: 065
     Dates: start: 20141015, end: 20141023
  8. RISPERDAL [Interacting]
     Active Substance: RISPERIDONE
     Dosage: 1 MG, UNKNOWN
     Route: 065
     Dates: start: 20141024, end: 20141027
  9. CIPRALEX [Suspect]
     Active Substance: ESCITALOPRAM OXALATE
     Dosage: 10 MG, UNKNOWN
     Route: 048
     Dates: start: 20150313, end: 20150318
  10. CIPRALEX [Suspect]
     Active Substance: ESCITALOPRAM OXALATE
     Dosage: 10 MG, UNKNOWN
     Route: 048
     Dates: start: 201601
  11. TOPAMAX [Suspect]
     Active Substance: TOPIRAMATE
     Dosage: 100 MG, UNKNOWN
     Route: 048
     Dates: start: 20150309, end: 201601
  12. TOPAMAX [Suspect]
     Active Substance: TOPIRAMATE
     Dosage: 25 MG, UNKNOWN
     Route: 048
     Dates: start: 201601, end: 20160216
  13. LYRICA [Interacting]
     Active Substance: PREGABALIN
     Dosage: 375 MG, UNKNOWN
     Route: 048
     Dates: start: 20160208, end: 20160208
  14. CIPRALEX [Suspect]
     Active Substance: ESCITALOPRAM OXALATE
     Dosage: 15 MG, UNKNOWN
     Route: 048
     Dates: start: 20150319
  15. TOPAMAX [Suspect]
     Active Substance: TOPIRAMATE
     Indication: PRODUCT USED FOR UNKNOWN INDICATION
     Dosage: 25 MG, UNKNOWN
     Route: 048
     Dates: start: 20141030, end: 20141106
  16. LYRICA [Interacting]
     Active Substance: PREGABALIN
     Indication: PRODUCT USED FOR UNKNOWN INDICATION
     Dosage: 300 MG, UNKNOWN
     Route: 065
     Dates: start: 201401, end: 201405
  17. LYRICA [Interacting]
     Active Substance: PREGABALIN
     Dosage: 600 MG, UNKNOWN
     Route: 065
     Dates: start: 201405, end: 20150318
  18. CIPRALEX [Suspect]
     Active Substance: ESCITALOPRAM OXALATE
     Dosage: 15 MG, UNKNOWN
     Route: 048
     Dates: start: 20150324, end: 201601
  19. LYRICA [Interacting]
     Active Substance: PREGABALIN
     Dosage: 750 MG, UNKNOWN
     Route: 048
     Dates: start: 20150319, end: 201601
  20. LYRICA [Interacting]
     Active Substance: PREGABALIN
     Dosage: 150 MG, UNKNOWN
     Route: 048
     Dates: start: 20160211, end: 20160214
  21. CYMBALTA [Suspect]
     Active Substance: DULOXETINE HYDROCHLORIDE
     Indication: DEPRESSION
     Dosage: 60 MG, UNKNOWN
     Route: 048
     Dates: start: 201401, end: 20150309
  22. LYRICA [Interacting]
     Active Substance: PREGABALIN
     Dosage: 450 MG, UNKNOWN
     Route: 048
     Dates: start: 201601, end: 20160207
  23. PANTOLOC                           /01263204/ [Concomitant]
     Active Substance: PANTOPRAZOLE SODIUM
     Indication: PRODUCT USED FOR UNKNOWN INDICATION
     Dosage: 40 MG, UNKNOWN
     Route: 065
     Dates: start: 201405

REACTIONS (10)
  - Weight increased [Recovering/Resolving]
  - Frustration tolerance decreased [Unknown]
  - Blood cholesterol increased [Unknown]
  - Tremor [Unknown]
  - Splenomegaly [Unknown]
  - Liver injury [Unknown]
  - Fatigue [Unknown]
  - Blood triglycerides increased [Unknown]
  - Neutrophil count decreased [Unknown]
  - Kidney enlargement [Unknown]

NARRATIVE: CASE EVENT DATE: 2015
